FAERS Safety Report 4866248-7 (Version None)
Quarter: 2005Q4

REPORT INFORMATION
  Report Type: 
  Country: None (occurrence: None)
  Receive Date: 20051220
  Receipt Date: 20051205
  Transmission Date: 20060501
  Serious: Yes (Hospitalization)
  Sender: FDA-Public Use
  Company Number: 8013838

PATIENT
  Sex: Male

DRUGS (2)
  1. KEPPRA [Suspect]
  2. OXCARBAZEPIN [Suspect]

REACTIONS (1)
  - RENAL FAILURE [None]
